FAERS Safety Report 6644227-7 (Version None)
Quarter: 2010Q1

REPORT INFORMATION
  Report Type: 
  Country: None (occurrence: None)
  Receive Date: 20100322
  Receipt Date: 20100222
  Transmission Date: 20100710
  Serious: Yes (Death, Life-Threatening)
  Sender: FDA-Public Use
  Company Number: JP-JNJFOC-20100102030

PATIENT
  Sex: Female
  Weight: 47 kg

DRUGS (2)
  1. DOXORUBICIN HCL [Suspect]
     Indication: OVARIAN CANCER RECURRENT
     Route: 042
  2. PHENYTOIN [Concomitant]
     Route: 065

REACTIONS (3)
  - ANAEMIA [None]
  - CONVULSION [None]
  - OVARIAN CANCER [None]
